FAERS Safety Report 9878093 (Version 2)
Quarter: 2014Q1

REPORT INFORMATION
  Report Type: Spontaneous
  Country: FR (occurrence: FR)
  Receive Date: 20140206
  Receipt Date: 20140206
  Transmission Date: 20141002
  Serious: Yes (Other)
  Sender: FDA-Public Use
  Company Number: FR-JNJFOC-20140106915

PATIENT
  Age: 54 Year
  Sex: Female
  Weight: 97 kg

DRUGS (8)
  1. REMICADE [Suspect]
     Indication: SARCOIDOSIS
     Route: 042
     Dates: start: 20110915, end: 20111222
  2. METHOTREXATE [Suspect]
     Indication: SARCOIDOSIS
     Dosage: DURING 3 MONTHS
     Route: 058
     Dates: start: 20110602, end: 201110
  3. METHOTREXATE [Suspect]
     Indication: SARCOIDOSIS
     Route: 058
  4. METHOTREXATE [Suspect]
     Indication: SARCOIDOSIS
     Route: 058
  5. LYRICA [Concomitant]
     Indication: DIABETIC NEUROPATHY
     Route: 048
     Dates: start: 201112
  6. HUMALOG [Concomitant]
     Indication: DIABETES MELLITUS
     Route: 058
     Dates: start: 200711
  7. STAGID [Concomitant]
     Indication: DIABETES MELLITUS
     Route: 048
     Dates: start: 2007
  8. TAHOR [Concomitant]
     Indication: HYPERCHOLESTEROLAEMIA
     Route: 048
     Dates: start: 2007

REACTIONS (2)
  - Drug-induced liver injury [Recovered/Resolved]
  - Off label use [Unknown]
